FAERS Safety Report 22241887 (Version 3)
Quarter: 2023Q2

REPORT INFORMATION
  Report Type: Report from Study
  Country: US (occurrence: US)
  Receive Date: 20230421
  Receipt Date: 20230623
  Transmission Date: 20230722
  Serious: Yes (Other)
  Sender: FDA-Public Use
  Company Number: US-002147023-NVSC2023US090918

PATIENT
  Sex: Male

DRUGS (10)
  1. ENTRESTO [Suspect]
     Active Substance: SACUBITRIL\VALSARTAN
     Indication: Product used for unknown indication
     Dosage: 1 DOSAGE FORM, BID
     Route: 048
     Dates: start: 20230327
  2. ENTRESTO [Suspect]
     Active Substance: SACUBITRIL\VALSARTAN
     Dosage: 0.5 DOSAGE FORM, BID (24/26MG) (IN THE MORNING AND AT NIGHT)
     Route: 048
  3. ENTRESTO [Suspect]
     Active Substance: SACUBITRIL\VALSARTAN
     Dosage: 0.5 DOSAGE FORM, QD (AM) (24/26MG)
     Route: 048
  4. BUMETANIDE [Suspect]
     Active Substance: BUMETANIDE
     Indication: Fluid retention
     Dosage: 3 MG, QID (O 2MG IN THE AM AND 1MG IN THE PM FOR THE NEXT 7 DAYS)
     Route: 065
  5. BUMETANIDE [Suspect]
     Active Substance: BUMETANIDE
     Dosage: 1 MG, BID
     Route: 065
  6. BUMETANIDE [Suspect]
     Active Substance: BUMETANIDE
     Dosage: 1 MG
     Route: 065
  7. SYNTHROID [Concomitant]
     Active Substance: LEVOTHYROXINE SODIUM
     Indication: Product used for unknown indication
     Dosage: UNK
     Route: 065
  8. ASPIRIN [Concomitant]
     Active Substance: ASPIRIN
     Indication: Product used for unknown indication
     Dosage: 81 MG
     Route: 065
  9. VITAMIN C [Concomitant]
     Active Substance: ASCORBIC ACID
     Indication: Product used for unknown indication
     Dosage: UNK
     Route: 065
  10. IRON [Concomitant]
     Active Substance: IRON
     Indication: Product used for unknown indication
     Dosage: UNK
     Route: 065

REACTIONS (10)
  - Atrial fibrillation [Unknown]
  - Hypotension [Unknown]
  - Fatigue [Unknown]
  - Asthenia [Unknown]
  - Hypoacusis [Unknown]
  - Condition aggravated [Unknown]
  - Fluid retention [Unknown]
  - Wrong technique in product usage process [Unknown]
  - Underdose [Unknown]
  - Inappropriate schedule of product administration [Unknown]
